FAERS Safety Report 11397852 (Version 3)
Quarter: 2015Q3

REPORT INFORMATION
  Report Type: Spontaneous
  Country: US (occurrence: US)
  Receive Date: 20150819
  Receipt Date: 20150917
  Transmission Date: 20151125
  Serious: Yes (Hospitalization, Disabling)
  Sender: FDA-Public Use
  Company Number: US-ACTELION PHARMACEUTICALS US, INC.-A-NJ2015-122505

PATIENT
  Age: 29 Year
  Sex: Female
  Weight: 66 kg

DRUGS (2)
  1. VELETRI [Suspect]
     Active Substance: EPOPROSTENOL
     Dosage: 20 NG/KG, UNK
     Route: 042
  2. VELETRI [Suspect]
     Active Substance: EPOPROSTENOL
     Indication: PULMONARY ARTERIAL HYPERTENSION
     Dosage: 17 NG/KG, PER MIN
     Route: 042
     Dates: start: 20130306

REACTIONS (4)
  - Nausea [Recovering/Resolving]
  - Overdose [Recovered/Resolved]
  - Diarrhoea [Recovering/Resolving]
  - Vomiting [Recovering/Resolving]
